FAERS Safety Report 7537027-7 (Version None)
Quarter: 2011Q2

REPORT INFORMATION
  Report Type: 
  Country: None (occurrence: None)
  Receive Date: 20110609
  Receipt Date: 20110526
  Transmission Date: 20111010
  Serious: Yes (Hospitalization, Other)
  Sender: FDA-Public Use
  Company Number: PHEH2010US03418

PATIENT

DRUGS (4)
  1. CELEBREX [Concomitant]
  2. ZOMETA [Suspect]
     Indication: METASTASES TO BONE
     Route: 042
  3. DURAGESIC-100 [Concomitant]
  4. AREDIA [Suspect]

REACTIONS (21)
  - PAIN [None]
  - ADNEXA UTERI MASS [None]
  - GASTROOESOPHAGEAL REFLUX DISEASE [None]
  - HEPATIC MASS [None]
  - ANHEDONIA [None]
  - HIATUS HERNIA [None]
  - OSTEOARTHRITIS [None]
  - ANXIETY [None]
  - BONE PAIN [None]
  - FRACTURED SACRUM [None]
  - BACK PAIN [None]
  - SPLENIC LESION [None]
  - INJURY [None]
  - ANAEMIA [None]
  - BONE LESION [None]
  - OSTEONECROSIS OF JAW [None]
  - PULMONARY EMBOLISM [None]
  - LYMPHOEDEMA [None]
  - SPONDYLOLYSIS [None]
  - ARTERIOSCLEROSIS [None]
  - GASTRIC POLYPS [None]
